FAERS Safety Report 22219862 (Version 4)
Quarter: 2024Q1

REPORT INFORMATION
  Report Type: Spontaneous
  Country: JP (occurrence: None)
  Receive Date: 20230417
  Receipt Date: 20240304
  Transmission Date: 20240410
  Serious: Yes (Life-Threatening, Hospitalization, Disabling)
  Sender: FDA-Public Use
  Company Number: 2022A415390

PATIENT
  Age: 77 Year
  Sex: Female
  Weight: 45 kg

DRUGS (14)
  1. ONDEXXYA [Suspect]
     Active Substance: ANDEXANET ALFA
     Indication: Aortic dissection
     Dosage: 800 MG AT RATE OF 30 MG/MIN
     Route: 042
     Dates: start: 20221218, end: 20221218
  2. ONDEXXYA [Suspect]
     Active Substance: ANDEXANET ALFA
     Indication: Aortic dissection
     Dosage: 960 MG AT RATE OF 8 MG/MIN
     Route: 042
     Dates: start: 20221218, end: 20221218
  3. ONDEXXYA [Suspect]
     Active Substance: ANDEXANET ALFA
     Indication: Aortic dissection
     Route: 042
     Dates: start: 20221218, end: 20221218
  4. HEPARIN [Suspect]
     Active Substance: HEPARIN SODIUM
     Indication: Extracorporeal circulation
     Dosage: 12000 UNITS
     Route: 042
     Dates: start: 20221218, end: 20221218
  5. HEPARIN [Suspect]
     Active Substance: HEPARIN SODIUM
     Indication: Extracorporeal circulation
     Dosage: 830 U/KG
     Route: 042
     Dates: start: 20221218, end: 20221218
  6. SEVOFLURANE [Concomitant]
     Active Substance: SEVOFLURANE
     Indication: Anaesthesia procedure
     Dosage: DOSE UNKNOWN
     Route: 042
     Dates: start: 20221218, end: 20221218
  7. DIPRIVAN [Concomitant]
     Active Substance: ISOPROPYL ALCOHOL\PROPOFOL
     Indication: Anaesthesia procedure
     Dosage: DOSE UNKNOWN
     Route: 042
     Dates: start: 20221218, end: 20221218
  8. FENTANYL [Concomitant]
     Active Substance: FENTANYL\FENTANYL CITRATE
     Indication: Anaesthesia procedure
     Route: 042
     Dates: start: 20221218, end: 20221218
  9. THIAMYLAL SODIUM [Concomitant]
     Active Substance: THIAMYLAL SODIUM
     Indication: Anaesthesia procedure
     Route: 042
     Dates: start: 20221218, end: 20221218
  10. ROCURONIUM BROMIDE [Concomitant]
     Active Substance: ROCURONIUM BROMIDE
     Indication: Anaesthesia procedure
     Route: 042
     Dates: start: 20221218, end: 20221218
  11. PHENYLEPHRINE HYDROCHLORIDE [Concomitant]
     Active Substance: PHENYLEPHRINE HYDROCHLORIDE
     Indication: Anaesthesia procedure
     Dosage: DOSE UNKNOWN
     Route: 042
     Dates: start: 20221218, end: 20221218
  12. CEFAZOLIN SODIUM [Concomitant]
     Active Substance: CEFAZOLIN SODIUM
     Indication: Anaesthesia procedure
     Route: 042
     Dates: start: 20221218, end: 20221218
  13. EDOXABAN TOSYLATE [Concomitant]
     Active Substance: EDOXABAN TOSYLATE
     Indication: Atrial fibrillation
     Dosage: 30.0MG UNKNOWN
     Route: 048
  14. ANTITHROMBIN GAMMA(GENETICAL RECOMBINATION) [Concomitant]
     Dosage: 1500 IU
     Dates: start: 20221218

REACTIONS (4)
  - Thrombosis in device [Recovered/Resolved]
  - Cerebral infarction [Recovering/Resolving]
  - Cognitive disorder [Unknown]
  - Heparin resistance [Unknown]

NARRATIVE: CASE EVENT DATE: 20221218
